FAERS Safety Report 18425725 (Version 1)
Quarter: 2020Q4

REPORT INFORMATION
  Report Type: Spontaneous
  Country: US (occurrence: US)
  Receive Date: 20201025
  Receipt Date: 20201025
  Transmission Date: 20210114
  Serious: Yes (Other)
  Sender: FDA-Public Use
  Company Number: None

PATIENT
  Age: 78 Year
  Sex: Female
  Weight: 47.7 kg

DRUGS (10)
  1. FLOVENT HFA [Concomitant]
     Active Substance: FLUTICASONE PROPIONATE
  2. WARFARIN [Concomitant]
     Active Substance: WARFARIN
  3. PACERONE [Concomitant]
     Active Substance: AMIODARONE HYDROCHLORIDE
  4. METOPROLOL. [Concomitant]
     Active Substance: METOPROLOL
  5. ULORIC [Concomitant]
     Active Substance: FEBUXOSTAT
  6. PROLIA [Suspect]
     Active Substance: DENOSUMAB
     Indication: BONE DISORDER
     Dosage: ?          QUANTITY:1 INJECTION(S);OTHER FREQUENCY:EVERY 6 MONTHS;?
     Route: 030
     Dates: start: 20180809, end: 20200820
  7. PROVENTIL [Concomitant]
     Active Substance: ALBUTEROL
  8. OMEPRAZOLE. [Concomitant]
     Active Substance: OMEPRAZOLE
  9. LEVOXYL [Concomitant]
     Active Substance: LEVOTHYROXINE SODIUM
  10. TORSEMIDE. [Concomitant]
     Active Substance: TORSEMIDE

REACTIONS (6)
  - Fluid retention [None]
  - Skin burning sensation [None]
  - Pain of skin [None]
  - Peripheral swelling [None]
  - Blister [None]
  - Rash [None]

NARRATIVE: CASE EVENT DATE: 20200825
